FAERS Safety Report 8986331 (Version 1)
Quarter: 2012Q4

REPORT INFORMATION
  Report Type: 
  Country: BR (occurrence: BR)
  Receive Date: 20121227
  Receipt Date: 20121227
  Transmission Date: 20130627
  Serious: Yes (Other)
  Sender: FDA-Public Use
  Company Number: BR-SANOFI-AVENTIS-2012SA092869

PATIENT
  Age: 70 Year
  Sex: Female
  Weight: 55 kg

DRUGS (10)
  1. LANTUS [Suspect]
     Indication: TYPE 2 DIABETES MELLITUS
     Route: 058
     Dates: start: 2002
  2. AUTOPEN 24 [Concomitant]
     Indication: DEVICE THERAPY
  3. ZETIA [Concomitant]
     Indication: CHOLESTEROL
     Dosage: taken from: about 5 years ago
     Route: 048
     Dates: start: 2007
  4. LIPITOR /UNK/ [Concomitant]
     Indication: CHOLESTEROL
     Dosage: taken from: about 26 years ago
     Route: 048
     Dates: start: 1986
  5. PURAN T4 [Concomitant]
     Indication: THYROID DISORDER
     Dosage: taken from: about 10 years ago
     Route: 048
     Dates: start: 2002
  6. HIGROTON [Concomitant]
     Indication: BLOOD PRESSURE
     Dosage: taken from: about 1 year ago
     Route: 048
     Dates: start: 2011
  7. NATRILIX [Concomitant]
     Indication: BLOOD PRESSURE
     Dosage: taken from: about 3 years ago
     Route: 048
     Dates: start: 2009
  8. ADALAT [Concomitant]
     Indication: BLOOD PRESSURE
     Dosage: taken from: about 5 years ago
     Route: 048
     Dates: start: 2007
  9. LOSARTAN [Concomitant]
     Indication: BLOOD PRESSURE
     Dosage: taken from: about 5 years ago
     Route: 048
     Dates: start: 2007
  10. GALVUS [Concomitant]
     Indication: TYPE 2 DIABETES MELLITUS
     Dosage: taken from: about 2 years ago
     Route: 048
     Dates: start: 2010

REACTIONS (5)
  - Cardiac failure [Recovering/Resolving]
  - Angina pectoris [Recovering/Resolving]
  - Hypoacusis [Recovering/Resolving]
  - Arrhythmia [Recovering/Resolving]
  - Depression [Recovered/Resolved]
